FAERS Safety Report 15814246 (Version 1)
Quarter: 2019Q1

REPORT INFORMATION
  Report Type: Spontaneous
  Country: US (occurrence: US)
  Receive Date: 20190111
  Receipt Date: 20190111
  Transmission Date: 20190417
  Serious: Yes (Other)
  Sender: FDA-Public Use
  Company Number: US-JAZZ-2018-US-017091

PATIENT
  Age: 53 Year
  Sex: Male

DRUGS (2)
  1. PRIALT [Suspect]
     Active Substance: ZICONOTIDE ACETATE
     Indication: PRODUCT USED FOR UNKNOWN INDICATION
     Dosage: TITRATING WITH INCREASES OF 1.8 ?G/WEEK
     Route: 037
     Dates: start: 201810, end: 2018
  2. PRIALT [Suspect]
     Active Substance: ZICONOTIDE ACETATE
     Dosage: TITRATION WERE DECREASED TO 0.9 ?G/WEEK
     Route: 037
     Dates: start: 2018

REACTIONS (1)
  - Urinary retention [Recovering/Resolving]

NARRATIVE: CASE EVENT DATE: 201810
